FAERS Safety Report 11379552 (Version 6)
Quarter: 2019Q1

REPORT INFORMATION
  Report Type: Spontaneous
  Country: GB (occurrence: GB)
  Receive Date: 20150814
  Receipt Date: 20190306
  Transmission Date: 20190417
  Serious: Yes (Death, Hospitalization, Other)
  Sender: FDA-Public Use
  Company Number: GB-ORION CORPORATION ORION PHARMA-ENTC2013-0468

PATIENT
  Age: 65 Year
  Sex: Male

DRUGS (16)
  1. STALEVO [Suspect]
     Active Substance: CARBIDOPA\ENTACAPONE\LEVODOPA
     Indication: PARKINSON^S DISEASE
     Route: 048
  2. STALEVO [Interacting]
     Active Substance: CARBIDOPA\ENTACAPONE\LEVODOPA
     Dosage: REDUCED DOSE
     Route: 048
     Dates: start: 201110
  3. ROTIGOTINE [Interacting]
     Active Substance: ROTIGOTINE
     Indication: PARKINSON^S DISEASE
     Dosage: STRENGTH: 2 MG
     Route: 065
  4. ROTIGOTINE [Interacting]
     Active Substance: ROTIGOTINE
     Dosage: STRENGTH: 4 MG
     Route: 065
  5. ROTIGOTINE [Interacting]
     Active Substance: ROTIGOTINE
     Dosage: STRENGTH: 4 MG (2X4 MG)
     Route: 065
  6. PRUCALOPRIDE [Suspect]
     Active Substance: PRUCALOPRIDE
     Indication: PRODUCT USED FOR UNKNOWN INDICATION
     Route: 065
  7. MOTILIUM [Concomitant]
     Active Substance: DOMPERIDONE
     Dosage: IF REQUIRED
     Route: 065
  8. MOVICOL [Concomitant]
     Active Substance: POLYETHYLENE GLYCOL 3350\POTASSIUM CHLORIDE\SODIUM BICARBONATE\SODIUM CHLORIDE
     Indication: CONSTIPATION
     Route: 065
  9. STALEVO [Interacting]
     Active Substance: CARBIDOPA\ENTACAPONE\LEVODOPA
     Dosage: STRENGTH: 200/50/200 MG
     Route: 048
     Dates: start: 2014, end: 20140102
  10. MADOPAR [Concomitant]
     Active Substance: BENSERAZIDE HYDROCHLORIDE\LEVODOPA
     Dosage: 50/12.5 1 TABLET AS REQUIRED AS RESCUE WHEN OFF; MAXIMUM 2 TABLETS PER DAY
     Route: 065
  11. STALEVO [Interacting]
     Active Substance: CARBIDOPA\ENTACAPONE\LEVODOPA
     Dosage: STRENGTH: 200/50200 MG
     Route: 048
  12. WARFARIN [Concomitant]
     Active Substance: WARFARIN
     Route: 065
  13. ZELAPAR [Concomitant]
     Active Substance: SELEGILINE HYDROCHLORIDE
     Route: 065
  14. AMANTADINE. [Concomitant]
     Active Substance: AMANTADINE HYDROCHLORIDE
     Route: 065
  15. LACTULOSE. [Concomitant]
     Active Substance: LACTULOSE
     Indication: CONSTIPATION
     Route: 065
  16. MOTILIUM [Concomitant]
     Active Substance: DOMPERIDONE
     Indication: ABDOMINAL DISTENSION
     Route: 065

REACTIONS (31)
  - Parkinson^s disease [Unknown]
  - Depression [Unknown]
  - Chest pain [Unknown]
  - Immobile [Unknown]
  - Dizziness [Unknown]
  - Confusional state [Unknown]
  - Headache [Unknown]
  - Hypertensive heart disease [Fatal]
  - Product complaint [Unknown]
  - Suspected counterfeit product [Unknown]
  - Product quality issue [Unknown]
  - Visual field defect [Unknown]
  - Drug interaction [Unknown]
  - Hyperkinesia [Unknown]
  - Fall [Unknown]
  - Pulmonary embolism [Fatal]
  - Drug ineffective [Unknown]
  - Product dispensing error [Unknown]
  - Morose [Unknown]
  - Therapeutic response unexpected [Unknown]
  - Deep vein thrombosis [Fatal]
  - Incorrect dose administered [Unknown]
  - Loss of personal independence in daily activities [Unknown]
  - Mental disorder [Unknown]
  - Abdominal distension [Unknown]
  - Product colour issue [Unknown]
  - Inappropriate schedule of product administration [Unknown]
  - Psychotic disorder [Recovering/Resolving]
  - Anxiety [Unknown]
  - Therapeutic response changed [Unknown]
  - Chromaturia [Unknown]

NARRATIVE: CASE EVENT DATE: 201110
